FAERS Safety Report 25968118 (Version 1)
Quarter: 2025Q4

REPORT INFORMATION
  Report Type: Spontaneous
  Country: EU (occurrence: EU)
  Receive Date: 20251028
  Receipt Date: 20251028
  Transmission Date: 20260117
  Serious: Yes (Other)
  Sender: NOVARTIS
  Company Number: EU-002147023-NVSC2025DE163036

PATIENT

DRUGS (2)
  1. LUTETIUM OXODOTREOTIDE LU-177 [Suspect]
     Active Substance: LUTETIUM OXODOTREOTIDE LU-177
     Indication: Phaeochromocytoma malignant
     Dosage: UNK
     Route: 065
  2. LUTETIUM OXODOTREOTIDE LU-177 [Suspect]
     Active Substance: LUTETIUM OXODOTREOTIDE LU-177
     Indication: Paraganglion neoplasm

REACTIONS (6)
  - Phaeochromocytoma malignant [Unknown]
  - Paraganglion neoplasm [Unknown]
  - Malignant neoplasm progression [Unknown]
  - Blood chromogranin A increased [Unknown]
  - Treatment failure [Unknown]
  - Off label use [Unknown]
